FAERS Safety Report 9438602 (Version 2)
Quarter: 2013Q3

REPORT INFORMATION
  Report Type: Spontaneous
  Country: JP (occurrence: JP)
  Receive Date: 20130802
  Receipt Date: 20130809
  Transmission Date: 20140515
  Serious: Yes (Other)
  Sender: FDA-Public Use
  Company Number: JP-PFIZER INC-2013223383

PATIENT
  Age: 59 Year
  Sex: Female

DRUGS (3)
  1. ZITHROMAC [Suspect]
     Indication: BRONCHITIS
     Dosage: 500 MG, 1X/DAY
     Route: 048
     Dates: start: 20130709, end: 20130711
  2. MEDICON [Concomitant]
     Indication: COUGH
     Dosage: 45 MG, 1X/DAY
     Route: 048
     Dates: start: 20130709, end: 20130713
  3. CEREKINON [Concomitant]
     Dosage: 300 MG, 1X/DAY
     Route: 048
     Dates: start: 20130709, end: 20130713

REACTIONS (1)
  - Haemorrhage subcutaneous [Unknown]
